FAERS Safety Report 18434630 (Version 2)
Quarter: 2021Q1

REPORT INFORMATION
  Report Type: Spontaneous
  Country: US (occurrence: US)
  Receive Date: 20201028
  Receipt Date: 20210126
  Transmission Date: 20210419
  Serious: No
  Sender: FDA-Public Use
  Company Number: US-ULTRAGENYX PHARMACEUTICAL INC.-US-UGNX-20-00188

PATIENT
  Age: 6 Year
  Sex: Female
  Weight: 21 kg

DRUGS (2)
  1. DOJOLVI [Suspect]
     Active Substance: TRIHEPTANOIN
     Indication: VERY LONG-CHAIN ACYL-COENZYME A DEHYDROGENASE DEFICIENCY
     Route: 048
     Dates: start: 20200811
  2. DOJOLVI [Suspect]
     Active Substance: TRIHEPTANOIN
     Route: 048
     Dates: start: 20200923

REACTIONS (2)
  - Abdominal discomfort [Recovering/Resolving]
  - Eructation [Recovered/Resolved]

NARRATIVE: CASE EVENT DATE: 20200811
